FAERS Safety Report 5623892-7 (Version None)
Quarter: 2008Q1

REPORT INFORMATION
  Report Type: 
  Country: None (occurrence: None)
  Receive Date: 20080207
  Receipt Date: 20080130
  Transmission Date: 20080703
  Serious: Yes (Hospitalization, Other)
  Sender: FDA-Public Use
  Company Number: 2008SP002368

PATIENT
  Age: 26 Year
  Sex: Female
  Weight: 43 kg

DRUGS (18)
  1. INTRON A [Suspect]
     Indication: RENAL CELL CARCINOMA
     Dosage: 6 MIU;TIW;IM
     Route: 030
     Dates: start: 20060109, end: 20060120
  2. INTRON A [Suspect]
     Indication: RENAL CELL CARCINOMA
     Dosage: 6 MIU;TIW;IM
     Route: 030
     Dates: start: 20060417, end: 20060424
  3. INTRON A [Suspect]
     Indication: RENAL CELL CARCINOMA
     Dosage: 6 MIU;TIW;IM
     Route: 030
     Dates: start: 20060123
  4. INTRON A [Suspect]
     Indication: RENAL CELL CARCINOMA
     Dosage: 6 MIU;TIW;IM
     Route: 030
     Dates: start: 20060220
  5. INTRON A [Suspect]
     Indication: RENAL CELL CARCINOMA
     Dosage: 6 MIU;TIW;IM
     Route: 030
     Dates: start: 20060320
  6. SORAFENIB (SORAFENIB) [Suspect]
     Indication: RENAL CELL CARCINOMA
     Dosage: 400 MG;QD;PO
     Route: 048
     Dates: start: 20060417, end: 20060426
  7. SORAFENIB (SORAFENIB) [Suspect]
     Indication: RENAL CELL CARCINOMA
     Dosage: 400 MG;QD;PO
     Route: 048
     Dates: start: 20060123
  8. SORAFENIB (SORAFENIB) [Suspect]
     Indication: RENAL CELL CARCINOMA
     Dosage: 400 MG;QD;PO
     Route: 048
     Dates: start: 20060220
  9. SORAFENIB (SORAFENIB) [Suspect]
     Indication: RENAL CELL CARCINOMA
     Dosage: 400 MG;QD;PO
     Route: 048
     Dates: start: 20060320
  10. VOLTAREN [Concomitant]
  11. VOLTAREN [Concomitant]
  12. LOXONIN [Concomitant]
  13. SELBEX [Concomitant]
  14. KERATINAMIN [Concomitant]
  15. ALLELOCK [Concomitant]
  16. DIFLAL [Concomitant]
  17. HIRUDOID [Concomitant]
  18. METHADERM [Concomitant]

REACTIONS (15)
  - ASCITES [None]
  - ASPIRATION PLEURAL CAVITY ABNORMAL [None]
  - ATELECTASIS [None]
  - BACK PAIN [None]
  - BILE DUCT OBSTRUCTION [None]
  - DISEASE PROGRESSION [None]
  - GASTROENTERITIS RADIATION [None]
  - JAUNDICE CHOLESTATIC [None]
  - MALIGNANT NEOPLASM PROGRESSION [None]
  - METASTASES TO LYMPH NODES [None]
  - MUSCULAR WEAKNESS [None]
  - OEDEMA PERIPHERAL [None]
  - PAIN IN EXTREMITY [None]
  - PLEURAL EFFUSION [None]
  - POSTRENAL FAILURE [None]
